FAERS Safety Report 25356639 (Version 1)
Quarter: 2025Q2

REPORT INFORMATION
  Report Type: Spontaneous
  Country: CN (occurrence: CN)
  Receive Date: 20250526
  Receipt Date: 20250526
  Transmission Date: 20250717
  Serious: Yes (Hospitalization)
  Sender: ACCORD
  Company Number: None

PATIENT
  Age: 50 Year
  Sex: Female

DRUGS (4)
  1. TRASTUZUMAB [Suspect]
     Active Substance: TRASTUZUMAB
     Indication: Invasive breast carcinoma
     Dosage: STRENGTH: 150MG, 318 MILLIGRAM, QD, IV DRIP
     Route: 042
     Dates: start: 20250412, end: 20250412
  2. DOCETAXEL [Suspect]
     Active Substance: DOCETAXEL
     Indication: Invasive breast carcinoma
     Dosage: 113 MILLIGRAM, QD, IV DRIP
     Route: 042
     Dates: start: 20250412, end: 20250412
  3. CARBOPLATIN [Suspect]
     Active Substance: CARBOPLATIN
     Indication: Invasive breast carcinoma
     Dosage: 600 MILLIGRAM, QD, IV DRIP
     Route: 042
     Dates: start: 20250412, end: 20250412
  4. PERTUZUMAB [Suspect]
     Active Substance: PERTUZUMAB
     Indication: Invasive breast carcinoma
     Dosage: 420 MILLIGRAM, QD, IV DRIP
     Route: 042
     Dates: start: 20250412, end: 20250412

REACTIONS (1)
  - Myelosuppression [Unknown]

NARRATIVE: CASE EVENT DATE: 20250428
